FAERS Safety Report 6535217-3 (Version None)
Quarter: 2010Q1

REPORT INFORMATION
  Report Type: 
  Country: None (occurrence: None)
  Receive Date: 20100105
  Receipt Date: 20091222
  Transmission Date: 20100710
  Serious: Yes (Life-Threatening, Hospitalization)
  Sender: FDA-Public Use
  Company Number: TRP_06677_2009

PATIENT
  Sex: Female
  Weight: 62.5057 kg

DRUGS (2)
  1. INFERGEN [Suspect]
     Indication: HEPATITIS C
     Dosage: (15 UG QD)
     Dates: start: 20091006, end: 20091201
  2. RIBAVIRIN [Suspect]
     Indication: HEPATITIS C
     Dosage: (800 MG, DAILY ORAL)
     Route: 048
     Dates: start: 20091006, end: 20091201

REACTIONS (6)
  - ANAEMIA [None]
  - ASTHENIA [None]
  - HYPOTENSION [None]
  - PANCYTOPENIA [None]
  - PYREXIA [None]
  - SEPSIS [None]
